FAERS Safety Report 5305611-7 (Version None)
Quarter: 2007Q2

REPORT INFORMATION
  Report Type: 
  Country: None (occurrence: None)
  Receive Date: 20070419
  Receipt Date: 20070419
  Transmission Date: 20071010
  Serious: No
  Sender: FDA-Public Use
  Company Number: None

PATIENT
  Age: 48 Year
  Sex: Female
  Weight: 80.2867 kg

DRUGS (1)
  1. VERSED [Suspect]
     Indication: SURGERY

REACTIONS (12)
  - ABNORMAL BEHAVIOUR [None]
  - ANAESTHETIC COMPLICATION [None]
  - CRYING [None]
  - DISINHIBITION [None]
  - DRUG HYPERSENSITIVITY [None]
  - EMOTIONAL DISORDER [None]
  - FEELING ABNORMAL [None]
  - HEART RATE INCREASED [None]
  - PARAMNESIA [None]
  - POST-TRAUMATIC STRESS DISORDER [None]
  - THINKING ABNORMAL [None]
  - TREMOR [None]
